FAERS Safety Report 7538050-9 (Version None)
Quarter: 2011Q2

REPORT INFORMATION
  Report Type: 
  Country: None (occurrence: None)
  Receive Date: 20110609
  Receipt Date: 20110530
  Transmission Date: 20111010
  Serious: Yes (Other)
  Sender: FDA-Public Use
  Company Number: JP-PFIZER INC-2011125224

PATIENT
  Age: 61 Year
  Sex: Female
  Weight: 62.1 kg

DRUGS (5)
  1. ATORVASTATIN CALCIUM [Suspect]
     Indication: HYPERCHOLESTEROLAEMIA
     Dosage: 10 MG, 1X/DAY
     Route: 048
     Dates: start: 20100914, end: 20101102
  2. ALLOPURINOL [Concomitant]
     Dosage: UNK
     Route: 048
  3. DIART [Concomitant]
     Dosage: UNK
     Route: 048
  4. PERSANTIN [Concomitant]
     Dosage: UNK
     Route: 048
  5. PREDNISOLONE [Concomitant]
     Dosage: UNK
     Route: 048

REACTIONS (1)
  - NEPHROTIC SYNDROME [None]
